FAERS Safety Report 4272875-0 (Version None)
Quarter: 2004Q1

REPORT INFORMATION
  Report Type: 
  Country: None (occurrence: None)
  Receive Date: 20040116
  Receipt Date: 20031231
  Transmission Date: 20041129
  Serious: Yes (Hospitalization, Other)
  Sender: FDA-Public Use
  Company Number: 200320818US

PATIENT
  Sex: Female
  Weight: 76.36 kg

DRUGS (14)
  1. TAXOTERE [Suspect]
     Indication: BREAST CANCER
     Route: 042
     Dates: start: 20031215, end: 20031215
  2. GEMCITABINE [Suspect]
     Indication: BREAST CANCER
     Route: 042
     Dates: start: 20031215, end: 20031215
  3. HUMULIN N [Concomitant]
     Indication: DIABETES MELLITUS
     Dosage: DOSE UNIT: UNITS
     Dates: start: 19980101
  4. LIPITOR [Concomitant]
     Indication: HYPERCHOLESTEROLAEMIA
     Dates: start: 19980101, end: 20031219
  5. CELEBREX [Concomitant]
     Indication: ARTHRITIS
     Dates: start: 19990101
  6. LOTENSIN [Concomitant]
     Indication: HYPERTENSION
     Dosage: DOSE: 20/25
     Dates: start: 19980101
  7. METOPROLOL [Concomitant]
     Indication: HYPERTENSION
     Dates: start: 19800101
  8. POTASSIUM [Concomitant]
     Dates: start: 19950101
  9. LASIX [Concomitant]
     Indication: OEDEMA
     Dates: start: 19950101
  10. GLUCOPHAGE [Concomitant]
     Indication: DIABETES MELLITUS
     Dates: start: 20031001
  11. PROTONIX [Concomitant]
     Indication: DYSPEPSIA
     Dates: start: 20031001
  12. CARAFATE [Concomitant]
     Indication: DYSPEPSIA
     Dates: start: 20031215
  13. ANZEMET [Concomitant]
     Indication: NAUSEA
     Dates: start: 20030501
  14. ANZEMET [Concomitant]
     Indication: VOMITING
     Dates: start: 20030501

REACTIONS (12)
  - CELLULITIS [None]
  - DUODENAL ULCER [None]
  - GASTRITIS HAEMORRHAGIC [None]
  - HAEMATOCRIT DECREASED [None]
  - HAEMOGLOBIN DECREASED [None]
  - NAUSEA [None]
  - PLATELET COUNT DECREASED [None]
  - VASCULITIS [None]
  - VENOUS STASIS [None]
  - VOMITING [None]
  - WEIGHT DECREASED [None]
  - WHITE BLOOD CELL COUNT INCREASED [None]
